FAERS Safety Report 24746070 (Version 1)
Quarter: 2024Q4

REPORT INFORMATION
  Report Type: Report from Study
  Country: US (occurrence: US)
  Receive Date: 20241218
  Receipt Date: 20241218
  Transmission Date: 20250115
  Serious: Yes (Death)
  Sender: INSMED
  Company Number: US-INSMED, INC.-2023-04563-US

PATIENT
  Sex: Female

DRUGS (1)
  1. ARIKAYCE [Suspect]
     Active Substance: AMIKACIN
     Indication: Mycobacterial infection
     Dosage: 590 MILLIGRAM, QD
     Route: 055
     Dates: start: 202306

REACTIONS (6)
  - Death [Fatal]
  - Product distribution issue [Unknown]
  - Therapy interrupted [Unknown]
  - Intentional dose omission [Unknown]
  - Device issue [Unknown]
  - Drug dose omission by device [Unknown]
